FAERS Safety Report 4349273-4 (Version None)
Quarter: 2004Q2

REPORT INFORMATION
  Report Type: 
  Country: None (occurrence: None)
  Receive Date: 20040427
  Receipt Date: 20030401
  Transmission Date: 20050107
  Serious: No
  Sender: FDA-Public Use
  Company Number: 000504

PATIENT
  Age: 74 Year
  Sex: Male
  Weight: 81.6 kg

DRUGS (4)
  1. ZEVALIN [Suspect]
     Indication: NON-HODGKIN'S LYMPHOMA
     Dosage: 325 MG, SINGLE, RITUXAN DOSE 1, INTRAVENOUS; SINGLE, IN-[111] ZEVALIN, INTRAVENOUS
     Route: 042
     Dates: start: 20030325, end: 20030325
  2. ZEVALIN [Suspect]
     Indication: NON-HODGKIN'S LYMPHOMA
     Dosage: 325 MG, SINGLE, RITUXAN DOSE 1, INTRAVENOUS; SINGLE, IN-[111] ZEVALIN, INTRAVENOUS
     Route: 042
     Dates: start: 20030325, end: 20030325
  3. ZEVALIN [Suspect]
     Dosage: SINGLE, RITUXAN DOSE 2, INTRAVENOUS; SINGLE, Y-[90] ZEVALIN, INTRAVENOUS
     Route: 042
     Dates: start: 20030408, end: 20030408
  4. ZEVALIN [Suspect]
     Dosage: SINGLE, RITUXAN DOSE 2, INTRAVENOUS; SINGLE, Y-[90] ZEVALIN, INTRAVENOUS
     Route: 042
     Dates: start: 20030408, end: 20030408

REACTIONS (1)
  - NEUTROPENIA [None]
